FAERS Safety Report 23672668 (Version 3)
Quarter: 2024Q3

REPORT INFORMATION
  Report Type: Report from Study
  Country: CA (occurrence: CA)
  Receive Date: 20240326
  Receipt Date: 20240819
  Transmission Date: 20241016
  Serious: Yes (Death, Hospitalization, Other)
  Sender: BOEHRINGER INGELHEIM
  Company Number: CA-BoehringerIngelheim-2021-BI-116320

PATIENT
  Age: 77 Year
  Sex: Female

DRUGS (4)
  1. OFEV [Suspect]
     Active Substance: NINTEDANIB
     Indication: Idiopathic pulmonary fibrosis
     Route: 048
     Dates: start: 20210607, end: 20220430
  2. OFEV [Suspect]
     Active Substance: NINTEDANIB
     Route: 048
     Dates: start: 20210921
  3. OFEV [Suspect]
     Active Substance: NINTEDANIB
     Dosage: IF NOT TOLERATED MAY DECREASE TO 100 MG ONCE DAILY/ IF NOT TOLERATED DUE TO SIDE EFFECTS MAY DECREAS
     Route: 048
  4. PREDNISONE [Concomitant]
     Active Substance: PREDNISONE
     Indication: Product used for unknown indication

REACTIONS (24)
  - Death [Fatal]
  - Pulmonary embolism [Recovered/Resolved]
  - Pulmonary thrombosis [Unknown]
  - Pneumonia [Unknown]
  - Rhinitis [Not Recovered/Not Resolved]
  - Chills [Recovered/Resolved]
  - Chills [Recovered/Resolved with Sequelae]
  - Pyrexia [Recovered/Resolved]
  - Fatigue [Not Recovered/Not Resolved]
  - COVID-19 [Recovered/Resolved]
  - Pneumonia [Recovered/Resolved]
  - Productive cough [Unknown]
  - Dyspnoea [Recovering/Resolving]
  - Diarrhoea [Not Recovered/Not Resolved]
  - Sputum retention [Unknown]
  - Intentional product misuse [Unknown]
  - Diarrhoea [Recovered/Resolved]
  - Sinusitis bacterial [Not Recovered/Not Resolved]
  - Nausea [Not Recovered/Not Resolved]
  - Decreased appetite [Not Recovered/Not Resolved]
  - Diarrhoea [Recovered/Resolved]
  - Myalgia [Unknown]
  - Muscle spasms [Unknown]
  - Peripheral swelling [Unknown]

NARRATIVE: CASE EVENT DATE: 20210712
